FAERS Safety Report 24347829 (Version 1)
Quarter: 2024Q3

REPORT INFORMATION
  Report Type: Spontaneous
  Country: IN (occurrence: None)
  Receive Date: 20240922
  Receipt Date: 20240922
  Transmission Date: 20241016
  Serious: Yes (Other)
  Sender: UNICHEM
  Company Number: IN-Unichem Pharmaceuticals (USA) Inc-UCM202409-001164

PATIENT
  Age: 16 Year
  Sex: Female

DRUGS (1)
  1. DIVALPROEX SODIUM [Suspect]
     Active Substance: DIVALPROEX SODIUM
     Indication: Hypomania
     Route: 065

REACTIONS (9)
  - Tourette^s disorder [Recovered/Resolved]
  - Cogwheel rigidity [Recovered/Resolved]
  - Behaviour disorder [Recovered/Resolved]
  - Negativism [Recovered/Resolved]
  - Nausea [Recovered/Resolved]
  - Tremor [Recovered/Resolved]
  - Condition aggravated [Recovered/Resolved]
  - Affective disorder [Recovered/Resolved]
  - Hepatic enzyme increased [Recovered/Resolved]
